FAERS Safety Report 20607721 (Version 1)
Quarter: 2022Q1

REPORT INFORMATION
  Report Type: Spontaneous
  Country: NL (occurrence: NL)
  Receive Date: 20220317
  Receipt Date: 20220317
  Transmission Date: 20220423
  Serious: Yes (Other)
  Sender: FDA-Public Use
  Company Number: None

PATIENT
  Age: 30 Year
  Sex: Female
  Weight: 82 kg

DRUGS (4)
  1. METRONIDAZOLE [Suspect]
     Active Substance: METRONIDAZOLE
     Indication: Bacterial vulvovaginitis
     Dosage: 1000 MILLIGRAM DAILY; BRAND NAME NOT SPECIFIED
     Route: 065
     Dates: start: 20220226, end: 20220228
  2. METRONIDAZOLE [Suspect]
     Active Substance: METRONIDAZOLE
     Indication: Vulvovaginal mycotic infection
  3. MULTIVITAMIN WITH VITAMIN D [Concomitant]
     Dosage: BRAND NAME NOT SPECIFIED,THERAPY START DATE AND END DATE: ASKU
  4. VITAMINE B COMPLEX FORTE [Concomitant]
     Dosage: THERAPY START DATE AND END DATE: ASKU,BRAND NAME NOT SPECIFIED

REACTIONS (8)
  - Hallucination, visual [Recovered/Resolved]
  - Diarrhoea [Recovering/Resolving]
  - Abdominal discomfort [Recovering/Resolving]
  - Dizziness [Recovering/Resolving]
  - Mood altered [Recovered/Resolved]
  - Affect lability [Recovered/Resolved]
  - Nausea [Recovering/Resolving]
  - Irritability [Recovered/Resolved]

NARRATIVE: CASE EVENT DATE: 20220227
